FAERS Safety Report 8483424-5 (Version None)
Quarter: 2012Q3

REPORT INFORMATION
  Report Type: 
  Country: None (occurrence: None)
  Receive Date: 20120702
  Receipt Date: 20120601
  Transmission Date: 20120928
  Serious: No
  Sender: FDA-Public Use
  Company Number: US-ASTRAZENECA-2011SE10932

PATIENT
  Age: 46 Year
  Sex: Female

DRUGS (5)
  1. CELEXA [Concomitant]
  2. NEXIUM [Suspect]
     Route: 048
  3. TRAZODONE HCL [Concomitant]
  4. NORVASC [Concomitant]
  5. QUINAPRIL [Concomitant]

REACTIONS (6)
  - ADVERSE EVENT [None]
  - INTENTIONAL DRUG MISUSE [None]
  - DRUG DOSE OMISSION [None]
  - INSOMNIA [None]
  - APHAGIA [None]
  - FEELING ABNORMAL [None]
